FAERS Safety Report 12777464 (Version 1)
Quarter: 2016Q3

REPORT INFORMATION
  Report Type: Spontaneous
  Country: US (occurrence: US)
  Receive Date: 20160924
  Receipt Date: 20160924
  Transmission Date: 20161109
  Serious: No
  Sender: FDA-Public Use
  Company Number: US-TEVA-594892USA

PATIENT
  Sex: Male

DRUGS (2)
  1. TRILEPTAL [Concomitant]
     Active Substance: OXCARBAZEPINE
  2. CLONAZEPAM. [Suspect]
     Active Substance: CLONAZEPAM
     Indication: SEIZURE
     Dosage: 1 IN MORNING, 2 AT NIGHT
     Route: 065

REACTIONS (3)
  - Lethargy [Not Recovered/Not Resolved]
  - Product substitution issue [Unknown]
  - Fatigue [Not Recovered/Not Resolved]

NARRATIVE: CASE EVENT DATE: 201508
